FAERS Safety Report 15714763 (Version 2)
Quarter: 2019Q1

REPORT INFORMATION
  Report Type: Spontaneous
  Country: US (occurrence: US)
  Receive Date: 20181212
  Receipt Date: 20190325
  Transmission Date: 20190417
  Serious: Yes (Life-Threatening, Other)
  Sender: FDA-Public Use
  Company Number: US-AMGEN-USASP2018174522

PATIENT
  Age: 3 Year
  Sex: Male

DRUGS (1)
  1. ETANERCEPT [Suspect]
     Active Substance: ETANERCEPT
     Indication: LANGERHANS^ CELL HISTIOCYTOSIS
     Dosage: 0.4 MILLIGRAM/KILOGRAM, 2 TIMES/WK
     Route: 058

REACTIONS (4)
  - Hyperbilirubinaemia [Recovered/Resolved]
  - Hepatic enzyme increased [Recovered/Resolved]
  - Off label use [Unknown]
  - Pancytopenia [Recovered/Resolved]
